FAERS Safety Report 11002312 (Version 1)
Quarter: 2015Q2

REPORT INFORMATION
  Report Type: Spontaneous
  Country: US (occurrence: US)
  Receive Date: 20150408
  Receipt Date: 20150408
  Transmission Date: 20150821
  Serious: No
  Sender: FDA-Public Use
  Company Number: US-ASTELLAS-2015US000048

PATIENT
  Age: 78 Year
  Sex: Female

DRUGS (1)
  1. MYRBETRIQ [Suspect]
     Active Substance: MIRABEGRON
     Indication: PRODUCT USED FOR UNKNOWN INDICATION
     Dosage: 2 DF, TWICE DAILY - 2 TABLETS AROUND 10 AM AND AT 5 PM
     Route: 048

REACTIONS (4)
  - Accidental overdose [Unknown]
  - Feeling hot [Unknown]
  - Intentional product use issue [Unknown]
  - Inappropriate schedule of drug administration [Unknown]
